FAERS Safety Report 25607234 (Version 1)
Quarter: 2025Q3

REPORT INFORMATION
  Report Type: Report from Study
  Country: CO (occurrence: CO)
  Receive Date: 20250725
  Receipt Date: 20250725
  Transmission Date: 20251020
  Serious: Yes (Hospitalization, Other)
  Sender: UCB
  Company Number: CO-UCBSA-2025045747

PATIENT
  Age: 0 Year
  Sex: Male
  Weight: 3.37 kg

DRUGS (17)
  1. CERTOLIZUMAB PEGOL [Suspect]
     Active Substance: CERTOLIZUMAB PEGOL
     Indication: Ankylosing spondylitis
     Dosage: 400 MILLIGRAM, EV 30 DAYS
     Route: 064
     Dates: start: 20160701
  2. CERTOLIZUMAB PEGOL [Suspect]
     Active Substance: CERTOLIZUMAB PEGOL
     Indication: Crohn^s disease
     Dosage: 400 MILLIGRAM, EV 30 DAYS
     Route: 064
     Dates: start: 20250201
  3. CERTOLIZUMAB PEGOL [Suspect]
     Active Substance: CERTOLIZUMAB PEGOL
     Dosage: 400 MILLIGRAM, EV 30 DAYS
     Route: 063
     Dates: start: 20250530
  4. ENOXAPARIN [Concomitant]
     Active Substance: ENOXAPARIN
     Indication: Product used for unknown indication
  5. ACETAMINOPHEN [Concomitant]
     Active Substance: ACETAMINOPHEN
     Indication: Product used for unknown indication
  6. DICLOFENAC [Concomitant]
     Active Substance: DICLOFENAC
     Indication: Product used for unknown indication
  7. NIFEDIPINE [Concomitant]
     Active Substance: NIFEDIPINE
     Indication: Hypertension
     Dosage: 30 MILLIGRAM, 2X/DAY (BID)
     Route: 064
     Dates: start: 20240930
  8. NIFEDIPINE [Concomitant]
     Active Substance: NIFEDIPINE
     Dosage: 30 MILLIGRAM, 2X/DAY (BID)
     Route: 063
     Dates: start: 20250530
  9. ENALAPRIL [Concomitant]
     Active Substance: ENALAPRIL
     Indication: Hypertension
     Dosage: 20 MILLIGRAM, ONCE DAILY (QD)
     Route: 063
     Dates: start: 20250530
  10. INSULIN LISPRO [Concomitant]
     Active Substance: INSULIN LISPRO
     Indication: Diabetes mellitus
     Route: 064
     Dates: start: 20240930, end: 20250530
  11. INSULIN GLARGINE [Concomitant]
     Active Substance: INSULIN GLARGINE
     Indication: Diabetes mellitus
     Route: 064
     Dates: start: 20240930, end: 20250530
  12. ASPIRIN [Concomitant]
     Active Substance: ASPIRIN
     Indication: Product used for unknown indication
     Route: 064
     Dates: start: 20240930, end: 20250401
  13. FERRIMED PLUS [Concomitant]
     Indication: Anaemia
     Route: 063
     Dates: start: 20250201
  14. FERRIMED PLUS [Concomitant]
     Route: 064
  15. OROCAL D [Concomitant]
     Indication: Anaemia
     Route: 064
     Dates: start: 20250201, end: 20250401
  16. IRON [Concomitant]
     Active Substance: IRON
     Indication: Anaemia
     Route: 064
     Dates: start: 20250201
  17. IRON [Concomitant]
     Active Substance: IRON
     Route: 063
     Dates: start: 20250201

REACTIONS (4)
  - Maternal exposure during pregnancy [Unknown]
  - Amniocentesis abnormal [Unknown]
  - Exposure via breast milk [Unknown]
  - Maternal exposure before pregnancy [Unknown]

NARRATIVE: CASE EVENT DATE: 20240908
